FAERS Safety Report 19745807 (Version 3)
Quarter: 2021Q3

REPORT INFORMATION
  Report Type: Report from Study
  Country: US (occurrence: US)
  Receive Date: 20210825
  Receipt Date: 20210907
  Transmission Date: 20211014
  Serious: Yes (Hospitalization)
  Sender: FDA-Public Use
  Company Number: US-CELGENEUS-USA-20210804763

PATIENT
  Age: 96 Year
  Sex: Male
  Weight: 64.8 kg

DRUGS (15)
  1. FAMOTIDINE. [Concomitant]
     Active Substance: FAMOTIDINE
     Indication: PRODUCT USED FOR UNKNOWN INDICATION
     Dosage: 20 MILLIGRAM
     Route: 065
  2. HYDROXYZINE [Concomitant]
     Active Substance: HYDROXYZINE HYDROCHLORIDE
     Indication: PRODUCT USED FOR UNKNOWN INDICATION
     Route: 065
  3. AZACITIDINE ORAL (CC?486) [Suspect]
     Active Substance: AZACITIDINE
     Indication: T-CELL LYMPHOMA
     Dosage: D1 + 10 OF EACH 21 DAY CYCLE, UPTO 6?CYCLES
     Route: 048
     Dates: start: 20210720, end: 20210810
  4. LENALIDOMIDE [Suspect]
     Active Substance: LENALIDOMIDE
     Indication: T-CELL LYMPHOMA
     Dosage: D7 + 10 OF EACH 21 DAY CYCLE, UPTO 6?CYCLES
     Route: 048
     Dates: start: 20210713, end: 20210812
  5. ASA [Concomitant]
     Active Substance: ASPIRIN
     Indication: PRODUCT USED FOR UNKNOWN INDICATION
     Dosage: 81 MILLIGRAM
     Route: 065
  6. CHOP [Concomitant]
     Active Substance: CYCLOPHOSPHAMIDE\DOXORUBICIN\PREDNISONE\VINCRISTINE
     Indication: PRODUCT USED FOR UNKNOWN INDICATION
     Dosage: 6?CYCLES
     Route: 065
     Dates: end: 202011
  7. ACYCLOVIR. [Concomitant]
     Active Substance: ACYCLOVIR
     Indication: PRODUCT USED FOR UNKNOWN INDICATION
     Route: 065
  8. LENALIDOMIDE [Suspect]
     Active Substance: LENALIDOMIDE
     Dosage: D7 + 10 OF EACH 21 DAY CYCLE, UPTO 6?CYCLES
     Route: 048
     Dates: start: 20210818
  9. DEXAMETHASONE. [Suspect]
     Active Substance: DEXAMETHASONE
     Indication: T-CELL LYMPHOMA
     Dosage: D1 + 10 OF EACH 21 DAY CYCLE, UPTO 6?CYCLES
     Route: 048
     Dates: start: 20210720, end: 20210810
  10. VALACYCLOVIR [Concomitant]
     Active Substance: VALACYCLOVIR HYDROCHLORIDE
     Indication: PRODUCT USED FOR UNKNOWN INDICATION
     Dosage: 400 MILLIGRAM
     Route: 065
  11. ROMIDEPSIN. [Suspect]
     Active Substance: ROMIDEPSIN
     Dosage: D1 + 10 OF EACH 21 DAY CYCLE, UPTO 6?CYCLES
     Route: 041
     Dates: start: 20210818
  12. IVERMECTIN. [Concomitant]
     Active Substance: IVERMECTIN
     Indication: ACARODERMATITIS
     Dosage: 2?DOSES
     Route: 065
  13. ROMIDEPSIN. [Suspect]
     Active Substance: ROMIDEPSIN
     Indication: T-CELL LYMPHOMA
     Dosage: D1 + 10 OF EACH 21 DAY CYCLE, UPTO 6?CYCLES
     Route: 041
     Dates: start: 20210720, end: 20210810
  14. ALLOPURINOL. [Concomitant]
     Active Substance: ALLOPURINOL
     Indication: PRODUCT USED FOR UNKNOWN INDICATION
     Dosage: 300 MILLIGRAM
     Route: 048
  15. KEFLEX [Concomitant]
     Active Substance: CEPHALEXIN
     Indication: DENTAL CARIES
     Route: 065
     Dates: start: 20210723

REACTIONS (2)
  - Rhabdomyolysis [Recovered/Resolved]
  - Blood bilirubin increased [Unknown]

NARRATIVE: CASE EVENT DATE: 20210813
